FAERS Safety Report 6468556-5 (Version None)
Quarter: 2009Q4

REPORT INFORMATION
  Report Type: 
  Country: None (occurrence: None)
  Receive Date: 20091130
  Receipt Date: 20091113
  Transmission Date: 20100525
  Serious: Yes (Hospitalization, Other)
  Sender: FDA-Public Use
  Company Number: BVT-000372

PATIENT
  Age: 53 Year
  Sex: Female

DRUGS (5)
  1. KINERET [Suspect]
     Indication: OSTEOARTHRITIS
     Dosage: 100 MG SUBCUTANEOUS
     Route: 058
     Dates: start: 20080901
  2. KINERET [Suspect]
     Indication: RHEUMATOID ARTHRITIS
     Dosage: 100 MG SUBCUTANEOUS
     Route: 058
     Dates: start: 20080901
  3. PREDNISONE TAB [Suspect]
     Indication: OSTEOARTHRITIS
     Dosage: ON PREDNISONE BEFORE AND DURING KINERET THERAPY ORAL
     Route: 048
  4. PREDNISONE TAB [Suspect]
     Indication: RHEUMATOID ARTHRITIS
     Dosage: ON PREDNISONE BEFORE AND DURING KINERET THERAPY ORAL
     Route: 048
  5. SULFASALAZINE [Concomitant]

REACTIONS (3)
  - ESCHERICHIA INFECTION [None]
  - INJECTION SITE PAIN [None]
  - SKIN INFECTION [None]
